FAERS Safety Report 15468577 (Version 2)
Quarter: 2019Q3

REPORT INFORMATION
  Report Type: Report from Study
  Country: US (occurrence: US)
  Receive Date: 20181005
  Receipt Date: 20190801
  Transmission Date: 20191004
  Serious: Yes (Hospitalization)
  Sender: FDA-Public Use
  Company Number: US-SA-2018SA273163

PATIENT
  Age: 63 Year
  Sex: Female

DRUGS (4)
  1. SARILUMAB [Suspect]
     Active Substance: SARILUMAB
     Dosage: 150 MG, QOW
     Route: 058
     Dates: start: 20190706
  2. SARILUMAB [Suspect]
     Active Substance: SARILUMAB
     Dosage: 200 MG, QOW
     Route: 058
  3. SARILUMAB [Suspect]
     Active Substance: SARILUMAB
     Indication: RHEUMATOID ARTHRITIS
     Dosage: 200 MG, QOW
     Route: 058
     Dates: start: 20180404
  4. SARILUMAB [Suspect]
     Active Substance: SARILUMAB
     Dosage: 150 MG, QOW
     Route: 058
     Dates: start: 20190517

REACTIONS (3)
  - Product dose omission [Not Recovered/Not Resolved]
  - Accident [Not Recovered/Not Resolved]
  - Hospitalisation [Not Recovered/Not Resolved]
